FAERS Safety Report 4991688-5 (Version None)
Quarter: 2006Q2

REPORT INFORMATION
  Report Type: 
  Country: None (occurrence: None)
  Receive Date: 20060504
  Receipt Date: 20060316
  Transmission Date: 20061013
  Serious: Yes (Hospitalization)
  Sender: FDA-Public Use
  Company Number: ESWYE476816MAR06

PATIENT
  Sex: Female

DRUGS (4)
  1. ENBREL [Suspect]
     Indication: RHEUMATOID ARTHRITIS
     Route: 058
     Dates: start: 20051122, end: 20051201
  2. SODIUM AUROTHIOMALATE [Concomitant]
     Route: 065
     Dates: start: 20040301
  3. DEFLAZACORT [Concomitant]
     Route: 065
  4. HYDROXYCHLOROQUINE SULFATE [Concomitant]
     Route: 065

REACTIONS (2)
  - LYMPHOMA [None]
  - PLEURAL EFFUSION [None]
